FAERS Safety Report 6887260-2 (Version None)
Quarter: 2010Q3

REPORT INFORMATION
  Report Type: 
  Country: None (occurrence: None)
  Receive Date: 20100730
  Receipt Date: 20100302
  Transmission Date: 20110219
  Serious: Yes (Other)
  Sender: FDA-Public Use
  Company Number: US-PERRIGO-10US007577

PATIENT
  Age: 26 Year
  Sex: Female
  Weight: 87.075 kg

DRUGS (3)
  1. NITETIME FREE LIQGL 977 [Suspect]
     Indication: SINUS CONGESTION
     Dosage: 2 DF, PRN, DAILY
     Route: 048
     Dates: start: 20100224, end: 20100302
  2. NITETIME FREE LIQGL 977 [Suspect]
     Indication: SINUS HEADACHE
  3. PRENATAL VITAMINS [Concomitant]
     Indication: ROUTINE HEALTH MAINTENANCE
     Dosage: 1 DOSE PER DAY
     Route: 048

REACTIONS (4)
  - DRUG EXPOSURE DURING PREGNANCY [None]
  - FOREIGN BODY [None]
  - OROPHARYNGEAL PAIN [None]
  - PHARYNGEAL OEDEMA [None]
